FAERS Safety Report 4284981-5 (Version None)
Quarter: 2004Q1

REPORT INFORMATION
  Report Type: 
  Country: None (occurrence: None)
  Receive Date: 20040202
  Receipt Date: 20040121
  Transmission Date: 20041129
  Serious: Yes (Other)
  Sender: FDA-Public Use
  Company Number: US-JNJFOC-20030903582

PATIENT
  Age: 30 Year
  Sex: Female
  Weight: 62.1428 kg

DRUGS (3)
  1. REMICADE [Suspect]
     Indication: CROHN'S DISEASE
     Dosage: 310 MG, INTRAVENOUS
     Route: 042
     Dates: start: 20030912
  2. REMICADE [Suspect]
  3. SOLU-MEDROL [Concomitant]

REACTIONS (8)
  - ABDOMINAL PAIN [None]
  - BLOOD PRESSURE INCREASED [None]
  - CYANOSIS [None]
  - DYSPNOEA [None]
  - FLUSHING [None]
  - HEART RATE INCREASED [None]
  - NAUSEA [None]
  - VOMITING [None]
